FAERS Safety Report 10355447 (Version 1)
Quarter: 2014Q3

REPORT INFORMATION
  Report Type: Spontaneous
  Country: IT (occurrence: IT)
  Receive Date: 20140731
  Receipt Date: 20140731
  Transmission Date: 20150326
  Serious: Yes (Hospitalization)
  Sender: FDA-Public Use
  Company Number: IT-WATSON-2014-16460

PATIENT
  Age: 60 Year
  Sex: Female
  Weight: 70 kg

DRUGS (3)
  1. LEVETIRACETAM (UNKNOWN) [Suspect]
     Active Substance: LEVETIRACETAM
     Indication: CONVULSION
     Dosage: 1000 MG, DAILY
     Route: 042
     Dates: start: 20140617, end: 20140624
  2. PHENOBARBITAL (UNKNOWN) [Suspect]
     Active Substance: PHENOBARBITAL
     Indication: CONVULSION
     Dosage: 100 MG, DAILY
     Route: 048
     Dates: start: 20140609, end: 20140612
  3. VALPROIC ACID (UNKNOWN) [Suspect]
     Active Substance: VALPROIC ACID
     Indication: CONVULSION
     Dosage: 400 MG, DAILY
     Route: 042
     Dates: start: 20140616, end: 20140623

REACTIONS (1)
  - Dermatitis allergic [Recovering/Resolving]

NARRATIVE: CASE EVENT DATE: 20140619
